FAERS Safety Report 8806517 (Version 3)
Quarter: 2013Q1

REPORT INFORMATION
  Report Type: Spontaneous
  Country: US (occurrence: US)
  Receive Date: 20120925
  Receipt Date: 20130111
  Transmission Date: 20140127
  Serious: Yes (Hospitalization)
  Sender: FDA-Public Use
  Company Number: US-BAYER-2012-097565

PATIENT
  Age: 23 Year
  Sex: Female
  Weight: 56.69 kg

DRUGS (3)
  1. YASMIN [Suspect]
     Indication: ACNE
     Dosage: UNK
     Dates: start: 20110308, end: 20110510
  2. YASMIN [Suspect]
     Indication: ACNE
  3. GOODYS [Concomitant]
     Indication: MIGRAINE

REACTIONS (10)
  - Pulmonary embolism [None]
  - Emotional distress [None]
  - Anhedonia [None]
  - Pain [None]
  - Injury [None]
  - Pain [None]
  - General physical health deterioration [None]
  - Anxiety [None]
  - Pain in jaw [None]
  - Vision blurred [None]
